FAERS Safety Report 11167589 (Version 1)
Quarter: 2015Q2

REPORT INFORMATION
  Report Type: Spontaneous
  Country: FR (occurrence: FR)
  Receive Date: 20150605
  Receipt Date: 20150605
  Transmission Date: 20150821
  Serious: Yes (Hospitalization, Other)
  Sender: FDA-Public Use
  Company Number: FR-GLAXOSMITHKLINE-B0674300A

PATIENT
  Age: 57 Year
  Sex: Female

DRUGS (4)
  1. RHINOTROPHYL [Concomitant]
     Active Substance: FRAMYCETIN\MONOETHANOLAMINE
     Indication: SINUSITIS
     Route: 045
     Dates: start: 20100505, end: 20100507
  2. AUGMENTIN [Suspect]
     Active Substance: AMOXICILLIN\CLAVULANATE POTASSIUM
     Indication: SINUSITIS
     Dosage: 1 G, TID
     Route: 048
     Dates: start: 20100505, end: 20100507
  3. EFFERALGAN [Concomitant]
     Active Substance: ACETAMINOPHEN
     Indication: SINUSITIS
     Route: 048
     Dates: start: 20100505, end: 20100507
  4. MUCOMYST [Concomitant]
     Active Substance: ACETYLCYSTEINE
     Indication: SINUSITIS
     Route: 048
     Dates: start: 20100505, end: 20100507

REACTIONS (9)
  - Tinnitus [Recovering/Resolving]
  - Hyperthermia [Recovering/Resolving]
  - Headache [Recovering/Resolving]
  - Balance disorder [Recovering/Resolving]
  - Coombs test positive [Unknown]
  - Pallor [Recovering/Resolving]
  - Neck pain [Recovering/Resolving]
  - Nausea [Recovering/Resolving]
  - Haemolytic anaemia [Recovering/Resolving]

NARRATIVE: CASE EVENT DATE: 20100507
